FAERS Safety Report 21519471 (Version 1)
Quarter: 2022Q4

REPORT INFORMATION
  Report Type: Spontaneous
  Country: DE (occurrence: DE)
  Receive Date: 20221028
  Receipt Date: 20221028
  Transmission Date: 20230113
  Serious: Yes (Hospitalization)
  Sender: FDA-Public Use
  Company Number: DE-ADRED-08313-01

PATIENT
  Age: 58 Year
  Sex: Female
  Weight: 75 kg

DRUGS (4)
  1. ATORVASTATIN [Suspect]
     Active Substance: ATORVASTATIN
     Indication: Product used for unknown indication
     Dosage: 20 MG, 0-0-1-0, TABLETTEN (20 MG, 0-0-1-0, TABLETS)
     Route: 048
  2. MIRTAZAPINE [Suspect]
     Active Substance: MIRTAZAPINE
     Indication: Product used for unknown indication
     Dosage: 15 MG, 0-0-1.5-0, TABLETTEN (15 MG, 0-0-1.5-0, TABLETS)
     Route: 048
  3. TYSABRI [Suspect]
     Active Substance: NATALIZUMAB
     Indication: Product used for unknown indication
     Dosage: 300 MG, NACH SCHEMA (300 MG, AS PER SCHEDULE)
  4. ASPIRIN [Concomitant]
     Active Substance: ASPIRIN
     Indication: Product used for unknown indication
     Dosage: 100 MG, 0-1-0-0, TABLETTEN (100 MG, 0-1-0-0, TABLETS)
     Route: 048

REACTIONS (6)
  - Dysaesthesia [Unknown]
  - Pain [Unknown]
  - Pain [Unknown]
  - Muscular weakness [Unknown]
  - Paraesthesia [Unknown]
  - Myalgia [Unknown]
